FAERS Safety Report 24587997 (Version 1)
Quarter: 2024Q4

REPORT INFORMATION
  Report Type: Spontaneous
  Country: US (occurrence: US)
  Receive Date: 20241107
  Receipt Date: 20241107
  Transmission Date: 20250114
  Serious: No
  Sender: INSMED
  Company Number: US-INSMED, INC.-2024-00111-US

PATIENT
  Sex: Male

DRUGS (2)
  1. ARIKAYCE [Suspect]
     Active Substance: AMIKACIN
     Indication: Product used for unknown indication
     Dosage: 590 MILLIGRAM, QD
     Route: 055
     Dates: start: 2023
  2. ARIKAYCE [Suspect]
     Active Substance: AMIKACIN
     Dosage: UNK, UNK
     Route: 055
     Dates: start: 202401

REACTIONS (11)
  - Lethargy [Unknown]
  - Poor quality sleep [Unknown]
  - Blood iron decreased [Unknown]
  - Condition aggravated [Not Recovered/Not Resolved]
  - Increased viscosity of bronchial secretion [Unknown]
  - Decreased appetite [Unknown]
  - Sputum increased [Unknown]
  - Feeling abnormal [Not Recovered/Not Resolved]
  - Productive cough [Unknown]
  - Cough [Unknown]
  - Therapy interrupted [Unknown]
